FAERS Safety Report 5116635-7 (Version None)
Quarter: 2006Q3

REPORT INFORMATION
  Report Type: 
  Country: None (occurrence: None)
  Receive Date: 20060928
  Receipt Date: 20060925
  Transmission Date: 20061208
  Serious: Yes (Hospitalization)
  Sender: FDA-Public Use
  Company Number: US-GLAXOSMITHKLINE-A0621307A

PATIENT
  Age: 63 Year
  Sex: Female

DRUGS (3)
  1. PAXIL CR [Suspect]
     Indication: DEPRESSION
     Dosage: 37.5MG PER DAY
     Route: 048
  2. SEROQUEL [Concomitant]
  3. CELEXA [Concomitant]

REACTIONS (6)
  - DIZZINESS [None]
  - HYPERHIDROSIS [None]
  - HYPONATRAEMIA [None]
  - LOSS OF CONSCIOUSNESS [None]
  - SLEEP WALKING [None]
  - VOMITING [None]
